FAERS Safety Report 24224601 (Version 2)
Quarter: 2024Q3

REPORT INFORMATION
  Report Type: Spontaneous
  Country: JP (occurrence: JP)
  Receive Date: 20240819
  Receipt Date: 20240902
  Transmission Date: 20241016
  Serious: Yes (Hospitalization, Other)
  Sender: MERCK
  Company Number: JP-MSD-M2023-30998

PATIENT
  Age: 37 Year
  Sex: Female

DRUGS (5)
  1. KEYTRUDA [Suspect]
     Active Substance: PEMBROLIZUMAB
     Indication: Triple negative breast cancer
     Dosage: 200 MILLIGRAM, Q3W
     Route: 041
     Dates: start: 202305, end: 2023
  2. DOXORUBICIN [Suspect]
     Active Substance: DOXORUBICIN
     Indication: Triple negative breast cancer
     Dosage: UNK
     Route: 065
     Dates: start: 2023
  3. CYCLOPHOSPHAMIDE [Suspect]
     Active Substance: CYCLOPHOSPHAMIDE
     Indication: Triple negative breast cancer
     Dosage: UNK
     Route: 065
     Dates: start: 2023
  4. CARBOPLATIN [Concomitant]
     Active Substance: CARBOPLATIN
     Indication: Triple negative breast cancer
     Dosage: UNK
     Route: 065
     Dates: start: 202305, end: 2023
  5. PACLITAXEL [Concomitant]
     Active Substance: PACLITAXEL
     Indication: Triple negative breast cancer
     Dosage: UNK, QW
     Route: 065
     Dates: start: 202305, end: 2023

REACTIONS (6)
  - Biliary obstruction [Recovering/Resolving]
  - Immune-mediated pancreatitis [Recovering/Resolving]
  - Adrenal insufficiency [Recovering/Resolving]
  - Thyroiditis [Recovering/Resolving]
  - Amylase increased [Unknown]
  - Back pain [Unknown]

NARRATIVE: CASE EVENT DATE: 20230101
